FAERS Safety Report 7307569-8 (Version None)
Quarter: 2011Q1

REPORT INFORMATION
  Report Type: 
  Country: None (occurrence: None)
  Receive Date: 20110223
  Receipt Date: 20110223
  Transmission Date: 20110831
  Serious: Yes (Other)
  Sender: FDA-Public Use
  Company Number: None

PATIENT
  Age: 77 Year
  Sex: Male
  Weight: 113.3993 kg

DRUGS (1)
  1. EQUATE HYGIENIC CLEANSING WIPES 50% WITCH HAZEL WYETH/TRIAD PHARMACEUD [Suspect]
     Indication: THERAPEUTIC SKIN CARE TOPICAL
     Dosage: 1 WIPE 1-2 X DAILY TOP
     Route: 061

REACTIONS (2)
  - PAIN [None]
  - RASH [None]
